FAERS Safety Report 15213048 (Version 2)
Quarter: 2019Q1

REPORT INFORMATION
  Report Type: Spontaneous
  Country: DE (occurrence: DE)
  Receive Date: 20180730
  Receipt Date: 20190131
  Transmission Date: 20190417
  Serious: Yes (Death, Life-Threatening, Hospitalization, Other)
  Sender: FDA-Public Use
  Company Number: DE-ACCORD-070016

PATIENT
  Age: 65 Year
  Sex: Male
  Weight: 58 kg

DRUGS (15)
  1. COTRIM FORTE [Concomitant]
     Active Substance: SULFAMETHOXAZOLE\TRIMETHOPRIM
     Indication: PROPHYLAXIS
  2. FLUCONAZOLE. [Concomitant]
     Active Substance: FLUCONAZOLE
  3. TIVICAY [Interacting]
     Active Substance: DOLUTEGRAVIR SODIUM
     Indication: HIV INFECTION
     Route: 048
     Dates: start: 20140919, end: 20150414
  4. TENOFOVIR [Interacting]
     Active Substance: TENOFOVIR
     Indication: HIV INFECTION
  5. EMTRICITABINE [Interacting]
     Active Substance: EMTRICITABINE
     Indication: HIV INFECTION
  6. CANDIO HERMAL [Concomitant]
     Indication: OESOPHAGEAL CANDIDIASIS
  7. ACETYLSALICYLIC ACID [Interacting]
     Active Substance: ASPIRIN
     Indication: ATRIAL FIBRILLATION
     Dates: start: 2010
  8. PIPERACILLIN/TAZOBACTAM [Concomitant]
  9. SIMVASTATIN. [Suspect]
     Active Substance: SIMVASTATIN
     Indication: ATRIAL FIBRILLATION
     Route: 048
     Dates: end: 20150416
  10. PANTOPRAZOLE [Interacting]
     Active Substance: PANTOPRAZOLE
     Indication: GASTROOESOPHAGEAL REFLUX DISEASE
     Dosage: 1X 20-40MG OVER YEARS
     Route: 048
     Dates: start: 2010
  11. OMEPRAZOLE. [Concomitant]
     Active Substance: OMEPRAZOLE
     Indication: PROPHYLAXIS
  12. MEROPENEM. [Concomitant]
     Active Substance: MEROPENEM
  13. METOPROLOL. [Interacting]
     Active Substance: METOPROLOL
     Indication: HYPERTENSION
     Dates: start: 2010
  14. CEFTRIAXONE. [Concomitant]
     Active Substance: CEFTRIAXONE
  15. LOPINAVIR/RITONAVIR [Concomitant]
     Indication: HIV INFECTION

REACTIONS (43)
  - Ocular icterus [Unknown]
  - Cholangitis [Fatal]
  - Abdominal pain [Unknown]
  - Bone marrow failure [Recovered/Resolved]
  - Shock haemorrhagic [Unknown]
  - Disseminated intravascular coagulation [Fatal]
  - Asthenia [Unknown]
  - Fatigue [Fatal]
  - Nausea [Unknown]
  - Leukopenia [Unknown]
  - Splenomegaly [Unknown]
  - Circulatory collapse [Fatal]
  - Hepatitis [Fatal]
  - Multiple organ dysfunction syndrome [Fatal]
  - Hypovolaemic shock [Fatal]
  - Lymphadenopathy [Unknown]
  - Faeces pale [Fatal]
  - Pneumonia [Unknown]
  - Neutropenic sepsis [Recovered/Resolved]
  - General physical health deterioration [Fatal]
  - Upper gastrointestinal haemorrhage [Fatal]
  - Pancytopenia [Unknown]
  - Hepatotoxicity [Not Recovered/Not Resolved]
  - Hepatic necrosis [Unknown]
  - Confusional state [Unknown]
  - Hepatomegaly [Unknown]
  - Metabolic acidosis [Unknown]
  - Portal fibrosis [Unknown]
  - Weight decreased [Fatal]
  - Jaundice [Fatal]
  - Agranulocytosis [Unknown]
  - Hyperferritinaemia [Unknown]
  - Candida infection [Unknown]
  - Coagulopathy [Fatal]
  - Sepsis [Unknown]
  - Neutropenia [Unknown]
  - Renal failure [Fatal]
  - Chromaturia [Fatal]
  - Decreased appetite [Unknown]
  - Hepatic enzyme increased [Fatal]
  - Drug interaction [Unknown]
  - Acute hepatic failure [Fatal]
  - Cholestasis [Unknown]

NARRATIVE: CASE EVENT DATE: 201503
